FAERS Safety Report 11595980 (Version 4)
Quarter: 2017Q2

REPORT INFORMATION
  Report Type: Spontaneous
  Country: US (occurrence: US)
  Receive Date: 20151006
  Receipt Date: 20170621
  Transmission Date: 20170829
  Serious: No
  Sender: FDA-Public Use
  Company Number: US-PFIZER INC-2015324693

PATIENT
  Age: 55 Year
  Sex: Male
  Weight: 122 kg

DRUGS (5)
  1. NICOTINE. [Suspect]
     Active Substance: NICOTINE
     Dosage: 21 MG, UNK
     Route: 062
  2. NICOTROL [Suspect]
     Active Substance: NICOTINE
     Dosage: UNK
  3. NICOTROL [Suspect]
     Active Substance: NICOTINE
     Indication: SMOKING CESSATION THERAPY
     Dosage: UNK
  4. NICOTROL [Suspect]
     Active Substance: NICOTINE
     Indication: SMOKING CESSATION THERAPY
     Dosage: UNK
     Dates: start: 2015, end: 2015
  5. NICOTINE. [Suspect]
     Active Substance: NICOTINE
     Indication: SMOKING CESSATION THERAPY
     Dosage: 21 MG, DAILY (OVER 24 HOURS)
     Route: 062
     Dates: start: 2015, end: 2015

REACTIONS (2)
  - Drug prescribing error [Unknown]
  - Drug ineffective [Unknown]

NARRATIVE: CASE EVENT DATE: 2015
